FAERS Safety Report 11160112 (Version 2)
Quarter: 2015Q2

REPORT INFORMATION
  Report Type: Spontaneous
  Country: US (occurrence: US)
  Receive Date: 20150603
  Receipt Date: 20150624
  Transmission Date: 20150821
  Serious: Yes (Other)
  Sender: FDA-Public Use
  Company Number: US-GILEAD-2015-0156097

PATIENT
  Age: 63 Year
  Sex: Male

DRUGS (7)
  1. DICLOFENAC SODIUM. [Suspect]
     Active Substance: DICLOFENAC SODIUM
     Indication: BACK PAIN
     Dosage: 50 MG, PRN
     Route: 048
     Dates: start: 20150430, end: 20150528
  2. LOSARTAN [Concomitant]
     Active Substance: LOSARTAN
     Indication: HYPERTENSION
     Dosage: 100 MG, QD
     Route: 065
     Dates: start: 20131114
  3. ASPIRIN                            /00002701/ [Suspect]
     Active Substance: ASPIRIN
     Dosage: 500 MG, BID
     Route: 065
     Dates: start: 201504, end: 201504
  4. TRIAMCINOLONE ACETATE [Concomitant]
     Active Substance: TRIAMCINOLONE ACETONIDE
     Indication: ECZEMA
     Dosage: 0.1 %, UNK
     Route: 061
     Dates: start: 20131114
  5. ASPIRIN                            /00002701/ [Suspect]
     Active Substance: ASPIRIN
     Indication: PAIN
     Dosage: 325 MG, PRN
     Route: 065
     Dates: start: 20141230, end: 20150528
  6. HARVONI [Suspect]
     Active Substance: LEDIPASVIR\SOFOSBUVIR
     Indication: HEPATITIS C
     Dosage: 1 DF, QD
     Route: 048
     Dates: start: 20141213, end: 20150207
  7. PROBIOTIC                          /06395501/ [Concomitant]
     Indication: PRODUCT USED FOR UNKNOWN INDICATION
     Dosage: 1 DF, QD
     Route: 065
     Dates: start: 20141211

REACTIONS (6)
  - Fall [Unknown]
  - Erectile dysfunction [Unknown]
  - Hypoaesthesia [Unknown]
  - Paraesthesia [Unknown]
  - Pain in extremity [Unknown]
  - Thrombocytopenia [Unknown]

NARRATIVE: CASE EVENT DATE: 201502
